FAERS Safety Report 26156166 (Version 1)
Quarter: 2025Q4

REPORT INFORMATION
  Report Type: Spontaneous
  Country: US (occurrence: US)
  Receive Date: 20251215
  Receipt Date: 20251215
  Transmission Date: 20260118
  Serious: No
  Sender: BAYER HEALTHCARE LLC
  Company Number: US-BAYER-2025A164247

PATIENT
  Sex: Male

DRUGS (1)
  1. MIRALAX [Suspect]
     Active Substance: POLYETHYLENE GLYCOL 3350
     Indication: Colonoscopy
     Dosage: HAVE TO TAKE 238 GRAMS OF MIRALAX WITH 8 OZ OF BEVERAGE
     Route: 048

REACTIONS (2)
  - Product use in unapproved indication [Unknown]
  - Increased dose administered [Unknown]
